FAERS Safety Report 8073827-5 (Version None)
Quarter: 2012Q1

REPORT INFORMATION
  Report Type: 
  Country: None (occurrence: None)
  Receive Date: 20120126
  Receipt Date: 20120120
  Transmission Date: 20120608
  Serious: Yes (Death, Other)
  Sender: FDA-Public Use
  Company Number: US-CELGENEUS-163-21880-11042917

PATIENT
  Sex: Female
  Weight: 61.2 kg

DRUGS (8)
  1. REVLIMID [Suspect]
     Dosage: 10 MILLIGRAM
     Route: 048
     Dates: start: 20110419, end: 20110427
  2. NEXIUM [Concomitant]
     Dosage: 40 MILLIGRAM
     Route: 048
  3. ONDANSETRON HCL [Concomitant]
     Indication: NAUSEA
     Dosage: 8 MILLIGRAM
     Route: 048
  4. AMBIEN [Concomitant]
     Indication: SLEEP DISORDER
     Dosage: 10 MILLIGRAM
     Route: 048
  5. PHENERGAN [Concomitant]
     Indication: NAUSEA
     Dosage: 25 MILLIGRAM
     Route: 048
  6. DURAGESIC-100 [Concomitant]
     Indication: PAIN
     Dosage: 100 MICROGRAM
     Route: 062
  7. OXYCODONE HCL [Concomitant]
     Indication: PAIN
     Dosage: 15 MILLIGRAM
     Route: 048
  8. REVLIMID [Suspect]
     Indication: MULTIPLE MYELOMA
     Dosage: 10 MILLIGRAM
     Route: 048
     Dates: start: 20080618

REACTIONS (2)
  - DEATH [None]
  - URINARY TRACT INFECTION [None]
